FAERS Safety Report 5199467-3 (Version None)
Quarter: 2006Q4

REPORT INFORMATION
  Report Type: 
  Country: None (occurrence: None)
  Receive Date: 20061229
  Receipt Date: 20061218
  Transmission Date: 20070319
  Serious: Yes (Death)
  Sender: FDA-Public Use
  Company Number: 2006SS000119

PATIENT
  Age: 72 Year
  Sex: Male
  Weight: 77.1115 kg

DRUGS (11)
  1. MYOBLOC [Suspect]
     Indication: MUSCLE SPASTICITY
     Dosage: 10000 UNITS; IM, 10000 UNITS, IM
     Route: 030
     Dates: start: 20060920, end: 20060920
  2. MYOBLOC [Suspect]
     Indication: OFF LABEL USE
     Dosage: 10000 UNITS; IM, 10000 UNITS, IM
     Route: 030
     Dates: start: 20060920, end: 20060920
  3. MYOBLOC [Suspect]
     Indication: MUSCLE SPASTICITY
     Dosage: 10000 UNITS; IM, 10000 UNITS, IM
     Route: 030
     Dates: start: 20061212, end: 20061212
  4. MYOBLOC [Suspect]
     Indication: OFF LABEL USE
     Dosage: 10000 UNITS; IM, 10000 UNITS, IM
     Route: 030
     Dates: start: 20061212, end: 20061212
  5. CYMBALTA [Concomitant]
  6. ASPIRIN [Concomitant]
  7. LEVOTHYROXINE SODIUM [Concomitant]
  8. BACLOFEN [Concomitant]
  9. ULTRAM [Concomitant]
  10. METOPROLOL SUCCINATE [Concomitant]
  11. PRILOSEC [Concomitant]

REACTIONS (4)
  - DISORIENTATION [None]
  - INFLUENZA LIKE ILLNESS [None]
  - INJECTION SITE PAIN [None]
  - PNEUMONIA [None]
